FAERS Safety Report 6269506-7 (Version None)
Quarter: 2009Q3

REPORT INFORMATION
  Report Type: 
  Country: None (occurrence: None)
  Receive Date: 20090715
  Receipt Date: 20090112
  Transmission Date: 20100115
  Serious: Yes (Death)
  Sender: FDA-Public Use
  Company Number: US-TYCO HEALTHCARE/MALLINCKRODT-T200900043

PATIENT
  Sex: Male

DRUGS (1)
  1. OXYCODONE [Suspect]
     Dosage: 15 MG, Q4H  PRN

REACTIONS (1)
  - OVERDOSE [None]
